FAERS Safety Report 22339968 (Version 1)
Quarter: 2023Q2

REPORT INFORMATION
  Report Type: Spontaneous
  Country: TW (occurrence: TW)
  Receive Date: 20230518
  Receipt Date: 20230518
  Transmission Date: 20230721
  Serious: Yes (Hospitalization)
  Sender: FDA-Public Use
  Company Number: TW-DSJP-DSJ-2023-119000

PATIENT
  Age: 97 Year
  Sex: Male

DRUGS (10)
  1. EDOXABAN [Suspect]
     Active Substance: EDOXABAN
     Indication: Atrial fibrillation
     Dosage: 30 MG, QD
     Route: 065
  2. EDOXABAN [Suspect]
     Active Substance: EDOXABAN
     Indication: Oedema peripheral
  3. EDOXABAN [Suspect]
     Active Substance: EDOXABAN
     Indication: Dyspnoea
  4. FUROSEMIDE [Concomitant]
     Active Substance: FUROSEMIDE
     Indication: Oedema peripheral
     Dosage: 40 MG, 0.5T, BID
     Route: 065
  5. FUROSEMIDE [Concomitant]
     Active Substance: FUROSEMIDE
     Indication: Dyspnoea
  6. SPIRONOLACTONE [Concomitant]
     Active Substance: SPIRONOLACTONE
     Indication: Oedema peripheral
     Dosage: 25 MG 1T QD
     Route: 065
  7. SPIRONOLACTONE [Concomitant]
     Active Substance: SPIRONOLACTONE
     Indication: Dyspnoea
  8. FAMOTIDINE [Concomitant]
     Active Substance: FAMOTIDINE
     Indication: Oedema peripheral
     Dosage: 20 MG 1T QHS
     Route: 065
  9. FAMOTIDINE [Concomitant]
     Active Substance: FAMOTIDINE
     Indication: Dyspnoea
  10. AMIODARONE [Concomitant]
     Active Substance: AMIODARONE
     Indication: Atrial fibrillation
     Dosage: 200 MG 0.5T QD
     Route: 065

REACTIONS (12)
  - Vasculitis [Unknown]
  - Cellulitis [Unknown]
  - Peripheral swelling [Unknown]
  - Erythema [Unknown]
  - Lung infiltration [Unknown]
  - Purpura [Unknown]
  - Scab [Unknown]
  - Blood blister [Unknown]
  - Tremor [Unknown]
  - Ecchymosis [Unknown]
  - Pneumonia [Unknown]
  - Skin odour abnormal [Unknown]
